FAERS Safety Report 8479599-4 (Version None)
Quarter: 2012Q2

REPORT INFORMATION
  Report Type: 
  Country: None (occurrence: None)
  Receive Date: 20120629
  Receipt Date: 20120627
  Transmission Date: 20120825
  Serious: No
  Sender: FDA-Public Use
  Company Number: US-PFIZER INC-2012155499

PATIENT
  Sex: Female
  Weight: 71.655 kg

DRUGS (5)
  1. PREMARIN [Suspect]
     Indication: HORMONE REPLACEMENT THERAPY
     Dosage: 1.25 MG, DAILY
     Dates: start: 19870101
  2. INDERAL LA [Concomitant]
     Indication: RHEUMATIC HEART DISEASE
  3. XANAX [Concomitant]
     Indication: NERVOUS SYSTEM DISORDER
     Dosage: 1 MG, 2X/DAY
  4. INDERAL LA [Concomitant]
     Indication: MITRAL VALVE PROLAPSE
     Dosage: 60 MG, DAILY
  5. FLEXERIL [Concomitant]
     Indication: MYALGIA
     Dosage: 10 MG, 2X/DAY

REACTIONS (1)
  - BREAST PAIN [None]
